FAERS Safety Report 9482549 (Version 1)
Quarter: 2013Q3

REPORT INFORMATION
  Report Type: Spontaneous
  Country: US (occurrence: US)
  Receive Date: 20130828
  Receipt Date: 20130828
  Transmission Date: 20140515
  Serious: No
  Sender: FDA-Public Use
  Company Number: US-SANOFI-AVENTIS-2013SA039618

PATIENT
  Sex: Male
  Weight: 94 kg

DRUGS (2)
  1. ELIGARD [Suspect]
     Indication: PROSTATE CANCER
     Dates: start: 20121211
  2. CHOLESTEROL- AND TRIGLYCERIDE REDUCERS [Concomitant]
     Route: 048

REACTIONS (3)
  - Prostatic specific antigen increased [Recovered/Resolved]
  - Blood testosterone increased [Recovered/Resolved]
  - Drug ineffective [Unknown]
